FAERS Safety Report 19481871 (Version 1)
Quarter: 2021Q3

REPORT INFORMATION
  Report Type: Spontaneous
  Country: FR (occurrence: FR)
  Receive Date: 20210701
  Receipt Date: 20210701
  Transmission Date: 20211014
  Serious: Yes (Hospitalization)
  Sender: FDA-Public Use
  Company Number: FR-ACCORD-229991

PATIENT
  Age: 68 Year
  Sex: Female
  Weight: 55 kg

DRUGS (4)
  1. CARBOPLATIN ACCORD [Suspect]
     Active Substance: CARBOPLATIN
     Indication: OVARIAN CANCER
     Dosage: 10 MG / ML, SOLUTION FOR INFUSION,
     Route: 041
     Dates: start: 20201202, end: 20201202
  2. ONDANSETRON ACCORD [Concomitant]
     Active Substance: ONDANSETRON
     Indication: OVARIAN CANCER
     Dosage: 2 MG / ML, SOLUTION FOR INJECTION
     Route: 041
     Dates: start: 20201202, end: 20201202
  3. GEMCITABINE ACCORD [Concomitant]
     Active Substance: GEMCITABINE HYDROCHLORIDE
     Indication: OVARIAN CANCER
     Dosage: 2000 MG, POWDER FOR SOLUTION FOR INFUSION
     Route: 041
     Dates: start: 20201202, end: 20201202
  4. METHYLPREDNISOLONE MYLAN [Concomitant]
     Active Substance: METHYLPREDNISOLONE
     Indication: OVARIAN CANCER
     Dosage: 120 MG, POWDER FOR SOLUTION FOR INJECTION (IM?IV)
     Route: 041
     Dates: start: 20201202, end: 20201202

REACTIONS (1)
  - Infusion related reaction [Recovered/Resolved]

NARRATIVE: CASE EVENT DATE: 20201202
